FAERS Safety Report 26086553 (Version 1)
Quarter: 2025Q4

REPORT INFORMATION
  Report Type: Spontaneous
  Country: US (occurrence: US)
  Receive Date: 20251125
  Receipt Date: 20251125
  Transmission Date: 20260117
  Serious: No
  Sender: BAUSCH AND LOMB
  Company Number: US-BAUSCHBL-2025BNL032373

PATIENT
  Age: 40 Year
  Sex: Female

DRUGS (1)
  1. MIEBO [Suspect]
     Active Substance: PERFLUOROHEXYLOCTANE
     Indication: Dry eye
     Dosage: 1 DROP IN BOTH EYES FOUR TIMES DAILY
     Route: 047
     Dates: start: 2025

REACTIONS (5)
  - Vision blurred [Recovered/Resolved]
  - Product use issue [Unknown]
  - Therapy interrupted [Unknown]
  - Product packaging quantity issue [Unknown]
  - Product knowledge deficit [Unknown]

NARRATIVE: CASE EVENT DATE: 20250101
